FAERS Safety Report 13379644 (Version 2)
Quarter: 2017Q2

REPORT INFORMATION
  Report Type: Spontaneous
  Country: US (occurrence: US)
  Receive Date: 20170328
  Receipt Date: 20170515
  Transmission Date: 20170830
  Serious: No
  Sender: FDA-Public Use
  Company Number: US-ELI_LILLY_AND_COMPANY-US201703007773

PATIENT
  Sex: Male
  Weight: 86.17 kg

DRUGS (4)
  1. VIAGRA [Suspect]
     Active Substance: SILDENAFIL CITRATE
     Indication: ERECTILE DYSFUNCTION
     Dosage: 100 MG, PRN
     Route: 065
     Dates: end: 20170307
  2. CITRULLINE [Concomitant]
     Active Substance: CITRULLINE
     Indication: ANDROGEN DEFICIENCY
     Dosage: 1000 MG, QD
     Route: 065
  3. ARGININE [Concomitant]
     Active Substance: ARGININE
     Indication: ANDROGEN DEFICIENCY
     Dosage: 1000 MG, QD
     Route: 065
  4. CIALIS [Suspect]
     Active Substance: TADALAFIL
     Indication: ERECTILE DYSFUNCTION
     Dosage: 10 MG, PRN
     Route: 065

REACTIONS (4)
  - Headache [Unknown]
  - Feeling abnormal [Unknown]
  - Intentional product misuse [Unknown]
  - Counterfeit drug administered [Unknown]
